FAERS Safety Report 7674293-1 (Version None)
Quarter: 2011Q3

REPORT INFORMATION
  Report Type: 
  Country: None (occurrence: None)
  Receive Date: 20110810
  Receipt Date: 20100920
  Transmission Date: 20111222
  Serious: No
  Sender: FDA-Public Use
  Company Number: US-BAUSCH-2010BL005288

PATIENT
  Age: 76 Year
  Sex: Female

DRUGS (3)
  1. ASPIRIN [Concomitant]
     Indication: ATRIAL FIBRILLATION
  2. CROMOLYN SODIUM [Suspect]
     Indication: HYPERSENSITIVITY
     Route: 045
     Dates: start: 20100913
  3. CARDIZEM [Concomitant]
     Indication: HYPERTENSION

REACTIONS (1)
  - BLOOD PRESSURE INCREASED [None]
